FAERS Safety Report 4898915-3 (Version None)
Quarter: 2006Q1

REPORT INFORMATION
  Report Type: 
  Country: None (occurrence: None)
  Receive Date: 20060202
  Receipt Date: 20060121
  Transmission Date: 20060701
  Serious: Yes (Other)
  Sender: FDA-Public Use
  Company Number: PHBS2006FI01285

PATIENT
  Sex: Female

DRUGS (1)
  1. EXJADE [Suspect]
     Indication: BONE MARROW FAILURE
     Dosage: 1500 MG
     Route: 048

REACTIONS (12)
  - BLOOD CREATININE INCREASED [None]
  - CATARACT [None]
  - CATARACT OPERATION [None]
  - CATHETER PLACEMENT [None]
  - EYELID CYST [None]
  - INFLUENZA [None]
  - MUMPS [None]
  - OCULAR ICTERUS [None]
  - PAIN [None]
  - PLATELET COUNT DECREASED [None]
  - SEPSIS [None]
  - WEIGHT INCREASED [None]
